FAERS Safety Report 14213825 (Version 2)
Quarter: 2018Q1

REPORT INFORMATION
  Report Type: Spontaneous
  Country: US (occurrence: US)
  Receive Date: 20171122
  Receipt Date: 20180117
  Transmission Date: 20180508
  Serious: Yes (Life-Threatening, Hospitalization, Other)
  Sender: FDA-Public Use
  Company Number: US-SAOL THERAPEUTICS-2017SAO01789

PATIENT
  Sex: Male

DRUGS (4)
  1. LIORESAL [Suspect]
     Active Substance: BACLOFEN
     Indication: HEAD INJURY
     Dosage: 250 ?G, \DAY
     Route: 037
  2. LIORESAL [Suspect]
     Active Substance: BACLOFEN
     Indication: MUSCLE SPASTICITY
     Dosage: 250 ?G, \DAY
     Route: 037
  3. LIORESAL [Suspect]
     Active Substance: BACLOFEN
     Indication: HEAD INJURY
  4. LIORESAL [Suspect]
     Active Substance: BACLOFEN
     Indication: MUSCLE SPASTICITY
     Dosage: 274.9 ?G, \DAY
     Route: 037

REACTIONS (7)
  - Seizure [Unknown]
  - Fall [Recovered/Resolved]
  - Haemorrhage intracranial [Unknown]
  - Implant site infection [Unknown]
  - Meningitis [Unknown]
  - Sepsis [Unknown]
  - Fungal infection [Unknown]
